FAERS Safety Report 9852453 (Version 2)
Quarter: 2014Q1

REPORT INFORMATION
  Report Type: Spontaneous
  Country: SE (occurrence: SE)
  Receive Date: 20140129
  Receipt Date: 20140131
  Transmission Date: 20141002
  Serious: Yes (Death)
  Sender: FDA-Public Use
  Company Number: SE-SA-2014SA009459

PATIENT
  Sex: Female

DRUGS (3)
  1. MULTAQ [Suspect]
     Indication: PRODUCT USED FOR UNKNOWN INDICATION
     Route: 065
  2. WARAN [Suspect]
  3. VERAPAMIL [Suspect]

REACTIONS (2)
  - Sudden death [Fatal]
  - Cerebral haemorrhage [Fatal]
